FAERS Safety Report 7477144-3 (Version None)
Quarter: 2011Q2

REPORT INFORMATION
  Report Type: 
  Country: None (occurrence: None)
  Receive Date: 20110512
  Receipt Date: 20110204
  Transmission Date: 20111010
  Serious: No
  Sender: FDA-Public Use
  Company Number: US-NOVEN-11US001727

PATIENT
  Sex: Male

DRUGS (4)
  1. DAYTRANA [Suspect]
     Indication: OBSESSIVE-COMPULSIVE DISORDER
  2. BUTTERCUP [Concomitant]
     Indication: NASOPHARYNGITIS
     Dosage: UNK
     Route: 048
  3. PERIACTIN [Concomitant]
     Indication: INCREASED APPETITE
     Dosage: UNK
     Route: 048
  4. DAYTRANA [Suspect]
     Indication: ATTENTION DEFICIT/HYPERACTIVITY DISORDER
     Dosage: 30 MG, QD
     Route: 062
     Dates: start: 20101201

REACTIONS (6)
  - APPLICATION SITE PRURITUS [None]
  - DRUG PRESCRIBING ERROR [None]
  - COMPULSIVE LIP BITING [None]
  - WRONG TECHNIQUE IN DRUG USAGE PROCESS [None]
  - PRODUCT QUALITY ISSUE [None]
  - NASOPHARYNGITIS [None]
